FAERS Safety Report 17119992 (Version 1)
Quarter: 2019Q4

REPORT INFORMATION
  Report Type: Spontaneous
  Country: RU (occurrence: RU)
  Receive Date: 20191206
  Receipt Date: 20191206
  Transmission Date: 20200122
  Serious: Yes (Other)
  Sender: FDA-Public Use
  Company Number: NVSC2019RU035354

PATIENT
  Age: 67 Year
  Sex: Female

DRUGS (6)
  1. GEMCITABINE. [Suspect]
     Active Substance: GEMCITABINE
     Indication: PANCREATIC CARCINOMA
     Dosage: 1000 MG/M2, QMO
     Route: 041
  2. ULTRAVIST [Concomitant]
     Active Substance: IOPROMIDE
     Indication: PRODUCT USED FOR UNKNOWN INDICATION
     Dosage: UNK UNK, QMO
     Route: 065
  3. DISTILLED WATER [Concomitant]
     Indication: PRODUCT USED FOR UNKNOWN INDICATION
     Dosage: UNK, QMO
     Route: 065
  4. GEMCITABINE. [Suspect]
     Active Substance: GEMCITABINE
     Dosage: 800 MG/M2 (400-800 MG/M2), QMO
     Route: 065
  5. OXALIPLATIN. [Suspect]
     Active Substance: OXALIPLATIN
     Indication: PANCREATIC CARCINOMA
     Dosage: 75 MG/M2, QMO
     Route: 065
  6. OMNIPAQUE [Concomitant]
     Active Substance: IOHEXOL
     Indication: PRODUCT USED FOR UNKNOWN INDICATION
     Dosage: UNK UNK, QMO
     Route: 065

REACTIONS (5)
  - Neutropenia [Unknown]
  - Product use in unapproved indication [Unknown]
  - Metastases to liver [Unknown]
  - Pancreatic carcinoma [Unknown]
  - Malignant neoplasm progression [Unknown]
